FAERS Safety Report 9992046 (Version 1)
Quarter: 2014Q1

REPORT INFORMATION
  Report Type: Spontaneous
  Country: US (occurrence: US)
  Receive Date: 20140310
  Receipt Date: 20140310
  Transmission Date: 20141002
  Serious: Yes (Other)
  Sender: FDA-Public Use
  Company Number: US-BAYER-2014-033973

PATIENT
  Age: 42 Year
  Sex: Female

DRUGS (5)
  1. YASMIN [Suspect]
  2. SERTRALINE [Concomitant]
     Dosage: 50 MG, UNK
     Route: 048
     Dates: start: 20070829
  3. NAPROXEN [Concomitant]
     Dosage: 375 MG, UNK
     Route: 048
     Dates: start: 20071006
  4. OXYCODONE/APAP [Concomitant]
     Dosage: 5/325 MG
     Route: 048
     Dates: start: 20071120
  5. ZOLOFT [Concomitant]

REACTIONS (1)
  - Deep vein thrombosis [Recovered/Resolved]
